FAERS Safety Report 4771112-8 (Version None)
Quarter: 2005Q3

REPORT INFORMATION
  Report Type: 
  Country: None (occurrence: None)
  Receive Date: 20050914
  Receipt Date: 20050906
  Transmission Date: 20060218
  Serious: Yes (Hospitalization, Other)
  Sender: FDA-Public Use
  Company Number: 2005124326

PATIENT
  Age: 37 Year
  Sex: Male
  Weight: 72.5755 kg

DRUGS (4)
  1. ZITHROMAX [Suspect]
     Indication: BRONCHITIS
     Dates: start: 20050501, end: 20050101
  2. ZOLOFT [Suspect]
     Indication: DEPRESSION
     Dosage: 50 MG (50 MG, QD)
     Dates: start: 20050201, end: 20050817
  3. LEVAQUIN [Suspect]
     Indication: BRONCHITIS
     Dates: start: 20050501, end: 20050101
  4. COUMADIN [Concomitant]

REACTIONS (5)
  - ABDOMINAL PAIN [None]
  - APPETITE DISORDER [None]
  - COLITIS [None]
  - DIARRHOEA [None]
  - WEIGHT DECREASED [None]
